FAERS Safety Report 9646204 (Version 2)
Quarter: 2013Q4

REPORT INFORMATION
  Report Type: Spontaneous
  Country: DE (occurrence: DE)
  Receive Date: 20131025
  Receipt Date: 20131108
  Transmission Date: 20140711
  Serious: Yes (Life-Threatening, Other)
  Sender: FDA-Public Use
  Company Number: DE-PFIZER INC-2013302394

PATIENT
  Age: 73 Year
  Sex: Male
  Weight: 75 kg

DRUGS (1)
  1. ECALTA [Suspect]
     Indication: CANDIDA SEPSIS
     Dosage: 100 MG, DAILY
     Route: 042
     Dates: start: 20130920, end: 20131015

REACTIONS (3)
  - Pancytopenia [Not Recovered/Not Resolved]
  - Septic shock [Unknown]
  - Multi-organ failure [Unknown]
